FAERS Safety Report 11336050 (Version 1)
Quarter: 2015Q3

REPORT INFORMATION
  Report Type: Spontaneous
  Country: US (occurrence: US)
  Receive Date: 20150804
  Receipt Date: 20150804
  Transmission Date: 20151125
  Serious: Yes (Other)
  Sender: FDA-Public Use
  Company Number: US-SA-2015SA112855

PATIENT
  Age: 51 Year
  Sex: Male

DRUGS (2)
  1. LANTUS SOLOSTAR [Suspect]
     Active Substance: INSULIN GLARGINE
     Dosage: STARTED LANTUS 3 YRS AGO
     Route: 065
     Dates: start: 2012
  2. SOLOSTAR [Concomitant]
     Active Substance: DEVICE
     Route: 065
     Dates: start: 2012

REACTIONS (2)
  - Glaucoma [Unknown]
  - Eye disorder [Unknown]

NARRATIVE: CASE EVENT DATE: 2013
